FAERS Safety Report 8561596-1 (Version None)
Quarter: 2012Q3

REPORT INFORMATION
  Report Type: 
  Country: None (occurrence: None)
  Receive Date: 20120727
  Receipt Date: 20120727
  Transmission Date: 20120928
  Serious: Yes (Hospitalization)
  Sender: FDA-Public Use
  Company Number: None

PATIENT
  Age: 67 Year
  Sex: Female
  Weight: 65 kg

DRUGS (15)
  1. DILTIAZEM [Concomitant]
  2. K+ [Concomitant]
  3. HYDROCODONE BITARTRATE AND ACETAMINOPHEN [Concomitant]
  4. COUMADIN [Suspect]
     Indication: ATRIAL FIBRILLATION
     Dosage: 5MG MWF,2.5MG TTHSS PO RECENTLY RESUMED
     Route: 048
  5. TOPRAL XL [Concomitant]
  6. LASIX [Concomitant]
  7. CA+VITD [Concomitant]
  8. VIT C [Concomitant]
  9. IMITREX [Concomitant]
  10. OMEPRAZOLE [Concomitant]
  11. FISH OIL [Concomitant]
  12. LOVENOX [Suspect]
     Indication: POLYPECTOMY
     Dosage: 60 MG Q12HOURS
     Route: 048
  13. EXCEDRIN (MIGRAINE) [Suspect]
  14. SYNTHROID [Concomitant]
  15. M.V.I. [Concomitant]

REACTIONS (4)
  - GASTROINTESTINAL HAEMORRHAGE [None]
  - SYNCOPE [None]
  - HAEMORRHAGIC ANAEMIA [None]
  - POST PROCEDURAL HAEMORRHAGE [None]
